FAERS Safety Report 22018318 (Version 2)
Quarter: 2023Q2

REPORT INFORMATION
  Report Type: Spontaneous
  Country: IL (occurrence: IL)
  Receive Date: 20230221
  Receipt Date: 20230503
  Transmission Date: 20230721
  Serious: Yes (Other)
  Sender: FDA-Public Use
  Company Number: IL-002147023-NVSC2023IL038505

PATIENT

DRUGS (4)
  1. RITUXIMAB [Suspect]
     Active Substance: RITUXIMAB
     Indication: Central nervous system lymphoma
     Dosage: 375 MG/M2, CYCLIC (ON DAYS 1, 15 AND 28)
     Route: 042
  2. METHOTREXATE [Suspect]
     Active Substance: METHOTREXATE
     Indication: Central nervous system lymphoma
     Dosage: 5 MG/M2, CYCLIC HIGH-DOSE (3.5 G/M2 FOR PATIENTS } 60 Y) ON DAYS 2, 15 AND 29
     Route: 042
  3. PROCARBAZINE [Suspect]
     Active Substance: PROCARBAZINE
     Indication: Central nervous system lymphoma
     Dosage: 100 MG/M2, CYCLIC (60 MG/M2 FOR PATIENTS } 60 Y) ON DAYS 3-9
     Route: 048
  4. LOMUSTINE [Suspect]
     Active Substance: LOMUSTINE
     Indication: Central nervous system lymphoma
     Dosage: 60 MG/M2, CYCLIC (40 MG/M2 FOR PATIENTS } 60 Y) ON DAY 2
     Route: 048

REACTIONS (1)
  - Psychotic disorder [Unknown]
